FAERS Safety Report 9257247 (Version 1)
Quarter: 2013Q2

REPORT INFORMATION
  Report Type: Report from Study
  Country: IN (occurrence: IN)
  Receive Date: 20130426
  Receipt Date: 20130426
  Transmission Date: 20140414
  Serious: Yes (Death, Other)
  Sender: FDA-Public Use
  Company Number: PHHY2013IN040607

PATIENT
  Age: 47 Year
  Sex: Male

DRUGS (1)
  1. SEBIVO [Suspect]
     Indication: CHRONIC HEPATITIS B
     Dosage: 600 MG, DAILY
     Route: 048
     Dates: start: 20130301

REACTIONS (3)
  - Chronic hepatitis B [Fatal]
  - Liver disorder [Unknown]
  - Condition aggravated [Unknown]
